FAERS Safety Report 9308475 (Version 2)
Quarter: 2013Q4

REPORT INFORMATION
  Report Type: Spontaneous
  Country: GB (occurrence: GB)
  Receive Date: 20130524
  Receipt Date: 20131018
  Transmission Date: 20140711
  Serious: Yes (Disabling, Other)
  Sender: FDA-Public Use
  Company Number: GB-PFIZER INC-2013146171

PATIENT
  Age: 54 Year
  Sex: Male
  Weight: 83 kg

DRUGS (13)
  1. PIOGLITAZONE HYDROCHLORIDE [Suspect]
     Dosage: UNK
     Route: 065
  2. ATENOLOL [Suspect]
     Dosage: 50 MG, UNK
     Route: 048
     Dates: start: 2003
  3. ASPIRIN [Concomitant]
     Dosage: UNK
     Route: 065
  4. CAPOTEN [Concomitant]
     Dosage: UNK
     Route: 065
  5. THYROXINE [Concomitant]
     Dosage: UNK
     Route: 065
  6. BYETTA [Concomitant]
     Dosage: UNK
     Route: 065
  7. GLICLAZIDE [Concomitant]
     Dosage: UNK
     Route: 065
  8. METFORMIN [Concomitant]
     Dosage: UNK
     Route: 065
  9. VIAGRA [Concomitant]
     Dosage: UNK
     Route: 065
  10. VITAMIN B12 [Concomitant]
     Dosage: UNK
     Route: 065
  11. MULTIVITAMINS [Concomitant]
     Dosage: UNK
     Route: 065
  12. IRON [Concomitant]
     Route: 065
  13. COD-LIVER OIL [Concomitant]
     Route: 065

REACTIONS (8)
  - Erectile dysfunction [Not Recovered/Not Resolved]
  - Loss of libido [Not Recovered/Not Resolved]
  - Anorgasmia [Not Recovered/Not Resolved]
  - Lethargy [Not Recovered/Not Resolved]
  - Paraesthesia [Not Recovered/Not Resolved]
  - Blood glucose abnormal [Recovering/Resolving]
  - Condition aggravated [Unknown]
  - Hand-arm vibration syndrome [Unknown]
